FAERS Safety Report 19699374 (Version 1)
Quarter: 2021Q3

REPORT INFORMATION
  Report Type: Spontaneous
  Country: CN (occurrence: CN)
  Receive Date: 20210813
  Receipt Date: 20210813
  Transmission Date: 20211014
  Serious: Yes (Hospitalization)
  Sender: FDA-Public Use
  Company Number: CN-EISAI MEDICAL RESEARCH-EC-2021-097629

PATIENT
  Age: 55 Year
  Sex: Male
  Weight: 58 kg

DRUGS (2)
  1. LENVATINIB [Suspect]
     Active Substance: LENVATINIB
     Indication: HEPATIC CANCER
     Route: 048
     Dates: start: 20210601, end: 20210702
  2. TISLELIZUMAB [Suspect]
     Active Substance: TISLELIZUMAB
     Indication: HEPATIC CANCER
     Dosage: FREQUENCY NOT PROVIDED
     Route: 041
     Dates: start: 20210612, end: 20210612

REACTIONS (3)
  - Diarrhoea [Recovering/Resolving]
  - Myelosuppression [Recovering/Resolving]
  - Dysbiosis [Recovering/Resolving]

NARRATIVE: CASE EVENT DATE: 20210629
